FAERS Safety Report 9294901 (Version 1)
Quarter: 2013Q1

REPORT INFORMATION
  Report Type: Spontaneous
  Country: US (occurrence: None)
  Receive Date: 20121227
  Receipt Date: 20121227
  Transmission Date: 20140127
  Serious: Yes (Other)
  Sender: FDA-Public Use
  Company Number: PHEH2011US010122

PATIENT
  Age: 73 Year
  Sex: Female
  Weight: 63.5 kg

DRUGS (4)
  1. EXJADE [Suspect]
     Indication: IRON OVERLOAD
     Route: 048
     Dates: start: 20111115, end: 20111125
  2. URSODIOL (URSODEOXYCHOLIC ACID) [Concomitant]
  3. LASIX (FUROSEMIDE) [Concomitant]
  4. ALDACTONE (SPIRONOLACTONE) [Concomitant]

REACTIONS (5)
  - Diarrhoea [None]
  - Dehydration [None]
  - Hepatic enzyme increased [None]
  - Vomiting [None]
  - Nausea [None]
